FAERS Safety Report 21648040 (Version 5)
Quarter: 2023Q1

REPORT INFORMATION
  Report Type: Spontaneous
  Country: SI (occurrence: SI)
  Receive Date: 20221128
  Receipt Date: 20230129
  Transmission Date: 20230417
  Serious: Yes (Hospitalization)
  Sender: FDA-Public Use
  Company Number: SI-MYLANLABS-2022M1129342

PATIENT
  Age: 65 Year
  Sex: Female

DRUGS (15)
  1. BOSENTAN [Suspect]
     Active Substance: BOSENTAN
     Indication: Pulmonary hypertension
     Dosage: UNK
     Route: 048
  2. DULOXETINE [Suspect]
     Active Substance: DULOXETINE
     Indication: Product used for unknown indication
     Route: 065
  3. PAROXETINE [Concomitant]
     Active Substance: PAROXETINE
     Dosage: UNK
  4. DAPAGLIFLOZIN [Concomitant]
     Active Substance: DAPAGLIFLOZIN
     Dosage: UNK
  5. TERAZOSIN [Concomitant]
     Active Substance: TERAZOSIN HYDROCHLORIDE
     Dosage: UNK
  6. CLONAZEPAM [Concomitant]
     Active Substance: CLONAZEPAM
     Dosage: UNK
  7. LACIDIPINE [Concomitant]
     Active Substance: LACIDIPINE
     Dosage: UNK
  8. PREGABALIN [Concomitant]
     Active Substance: PREGABALIN
  9. ASPIRIN [Concomitant]
     Active Substance: ASPIRIN
  10. SILDENAFIL [Concomitant]
     Active Substance: SILDENAFIL
  11. FUROSEMIDE [Concomitant]
     Active Substance: FUROSEMIDE
  12. NEBIVOLOL [Concomitant]
     Active Substance: NEBIVOLOL
  13. QUETIAPINE [Concomitant]
     Active Substance: QUETIAPINE
  14. METFORMIN [Concomitant]
     Active Substance: METFORMIN HYDROCHLORIDE
  15. UNSPECIFIED INGREDIENT [Concomitant]
     Active Substance: UNSPECIFIED INGREDIENT

REACTIONS (1)
  - Drug-induced liver injury [Recovering/Resolving]
